FAERS Safety Report 20806151 (Version 2)
Quarter: 2022Q3

REPORT INFORMATION
  Report Type: Spontaneous
  Country: US (occurrence: US)
  Receive Date: 20220510
  Receipt Date: 20220805
  Transmission Date: 20221027
  Serious: No
  Sender: FDA-Public Use
  Company Number: US-ALLERGAN-2208593US

PATIENT
  Age: 62 Year
  Sex: Female

DRUGS (2)
  1. VUITY [Suspect]
     Active Substance: PILOCARPINE HYDROCHLORIDE
     Indication: Product used for unknown indication
     Dosage: 2 GTT, SINGLE
     Route: 047
     Dates: start: 20220309, end: 20220309
  2. over the counter drops [Concomitant]
     Indication: Dry eye

REACTIONS (2)
  - Abnormal sensation in eye [Not Recovered/Not Resolved]
  - Vision blurred [Not Recovered/Not Resolved]

NARRATIVE: CASE EVENT DATE: 20220309
